FAERS Safety Report 4410756-X (Version None)
Quarter: 2004Q3

REPORT INFORMATION
  Report Type: 
  Country: None (occurrence: None)
  Receive Date: 20040726
  Receipt Date: 20040709
  Transmission Date: 20050211
  Serious: Yes (Death)
  Sender: FDA-Public Use
  Company Number: US-JNJFOC-20040702856

PATIENT
  Age: 88 Year
  Sex: Female

DRUGS (8)
  1. INFLIXIMAB (INFLIXIMAB, RECOMBINANT) LYOPHILIZED POWDER [Suspect]
     Indication: RHEUMATOID ARTHRITIS
     Dosage: INTRAVENOUS
     Route: 042
     Dates: start: 20001108, end: 20010427
  2. BEXTRA [Concomitant]
  3. MONOPRIL [Concomitant]
  4. FOSAMAX [Concomitant]
  5. ARAVA [Concomitant]
  6. PREDNISONE [Concomitant]
  7. OSCAL (CALCIUM CARBONATE) [Concomitant]
  8. CENTRUM (CENTRUM) [Concomitant]

REACTIONS (2)
  - AMNESIA [None]
  - AORTIC ANEURYSM RUPTURE [None]
